FAERS Safety Report 4988588-3 (Version None)
Quarter: 2006Q2

REPORT INFORMATION
  Report Type: 
  Country: None (occurrence: None)
  Receive Date: 20060426
  Receipt Date: 20060413
  Transmission Date: 20061013
  Serious: Yes (Hospitalization, Other)
  Sender: FDA-Public Use
  Company Number: 109722ISR

PATIENT
  Age: 42 Year
  Sex: Female

DRUGS (1)
  1. GLATIRAMER ACETATE [Suspect]
     Indication: MULTIPLE SCLEROSIS
     Dosage: 20 MILLIGRAM  SUBCUTANEOUS
     Route: 058
     Dates: start: 20030328

REACTIONS (1)
  - GASTROINTESTINAL STROMAL TUMOUR [None]
